FAERS Safety Report 5934324-3 (Version None)
Quarter: 2008Q4

REPORT INFORMATION
  Report Type: 
  Country: None (occurrence: None)
  Receive Date: 20081029
  Receipt Date: 20081020
  Transmission Date: 20090506
  Serious: Yes (Hospitalization, Other)
  Sender: FDA-Public Use
  Company Number: PHHY2008GB23235

PATIENT
  Sex: Female
  Weight: 70 kg

DRUGS (3)
  1. CLOZARIL [Suspect]
     Indication: SCHIZOPHRENIA
     Dosage: UNK
     Dates: start: 20020114, end: 20080924
  2. CLOZARIL [Suspect]
     Dosage: 200 MG, ONCE/SINGLE
     Dates: start: 20080927
  3. CLOZARIL [Suspect]
     Dosage: 200 MG/DAY

REACTIONS (5)
  - DIZZINESS [None]
  - SYNCOPE [None]
  - THERAPY CESSATION [None]
  - THERAPY REGIMEN CHANGED [None]
  - TREATMENT NONCOMPLIANCE [None]
